FAERS Safety Report 22277461 (Version 2)
Quarter: 2023Q2

REPORT INFORMATION
  Report Type: Spontaneous
  Country: US (occurrence: US)
  Receive Date: 20230503
  Receipt Date: 20230612
  Transmission Date: 20230722
  Serious: Yes (Other)
  Sender: FDA-Public Use
  Company Number: US-AMGEN-USASP2023073372

PATIENT
  Age: 32 Year
  Sex: Female

DRUGS (6)
  1. ADALIMUMAB [Suspect]
     Active Substance: ADALIMUMAB
     Indication: Hidradenitis
     Dosage: UNK
     Route: 065
  2. ADALIMUMAB [Suspect]
     Active Substance: ADALIMUMAB
     Indication: Autoinflammatory disease
  3. ISOTRETINOIN [Suspect]
     Active Substance: ISOTRETINOIN
     Indication: Autoinflammatory disease
     Route: 065
  4. DAPSONE [Suspect]
     Active Substance: DAPSONE
     Indication: Autoinflammatory disease
     Route: 048
  5. TRIAMCINOLONE [Suspect]
     Active Substance: TRIAMCINOLONE
     Indication: Autoinflammatory disease
     Dosage: UNK
     Route: 026
  6. DAPTOMYCIN [Concomitant]
     Active Substance: DAPTOMYCIN
     Indication: Product used for unknown indication
     Route: 042

REACTIONS (13)
  - Autoinflammatory disease [Unknown]
  - Hypogammaglobulinaemia [Unknown]
  - Osteomyelitis [Unknown]
  - Enterobacter infection [Unknown]
  - Escherichia bacteraemia [Unknown]
  - Therapy non-responder [Unknown]
  - Lymphadenopathy [Not Recovered/Not Resolved]
  - Therapy partial responder [Unknown]
  - Trichotillomania [Unknown]
  - Skin disorder [Unknown]
  - Staphylococcal infection [Unknown]
  - Proteus infection [Unknown]
  - Alopecia [Recovering/Resolving]
